FAERS Safety Report 15350392 (Version 1)
Quarter: 2018Q3

REPORT INFORMATION
  Report Type: Spontaneous
  Country: CN (occurrence: CN)
  Receive Date: 20180905
  Receipt Date: 20180905
  Transmission Date: 20181010
  Serious: Yes (Hospitalization)
  Sender: FDA-Public Use
  Company Number: PHHY2018CN087675

PATIENT
  Age: 47 Year
  Sex: Male
  Weight: 49 kg

DRUGS (1)
  1. GLIVEC [Suspect]
     Active Substance: IMATINIB MESYLATE
     Indication: CHRONIC MYELOID LEUKAEMIA
     Dosage: 0.4 G, QD
     Route: 048
     Dates: start: 20180616, end: 20180705

REACTIONS (3)
  - Face oedema [Recovering/Resolving]
  - Granuloma [Recovering/Resolving]
  - Oedema peripheral [Recovering/Resolving]

NARRATIVE: CASE EVENT DATE: 20180705
